FAERS Safety Report 5871843-2 (Version None)
Quarter: 2008Q3

REPORT INFORMATION
  Report Type: 
  Country: None (occurrence: None)
  Receive Date: 20080904
  Receipt Date: 20080904
  Transmission Date: 20090109
  Serious: Yes (Hospitalization)
  Sender: FDA-Public Use
  Company Number: None

PATIENT
  Sex: Male
  Weight: 98.7 kg

DRUGS (5)
  1. CYTARABINE [Suspect]
     Dosage: 6.7 G
     Dates: end: 20080227
  2. FLUCONAZOLE [Concomitant]
  3. LEVOFLOXACIN [Concomitant]
  4. PROCHLORPERAZINE [Concomitant]
  5. VALTREX [Concomitant]

REACTIONS (11)
  - DRY EYE [None]
  - HAEMODYNAMIC INSTABILITY [None]
  - HAEMOGLOBIN DECREASED [None]
  - HEART RATE INCREASED [None]
  - HYPOTENSION [None]
  - NEUTROPHIL COUNT DECREASED [None]
  - OCULAR HYPERTENSION [None]
  - PLATELET COUNT DECREASED [None]
  - PNEUMONIA [None]
  - STAPHYLOCOCCAL INFECTION [None]
  - WHITE BLOOD CELL COUNT DECREASED [None]
